FAERS Safety Report 18429489 (Version 1)
Quarter: 2020Q4

REPORT INFORMATION
  Report Type: Other
  Country: US (occurrence: US)
  Receive Date: 20201026
  Receipt Date: 20201026
  Transmission Date: 20210114
  Serious: Yes (Hospitalization)
  Sender: FDA-Public Use
  Company Number: US-GENUS_LIFESCIENCES-USA-POI0580202000217

PATIENT
  Age: 70 Year
  Sex: Female

DRUGS (8)
  1. OXYCODONE HCL CAPSULES [Suspect]
     Active Substance: OXYCODONE HYDROCHLORIDE
     Indication: MECHANICAL VENTILATION
     Dosage: UP TO 60 MG DAILY
     Route: 041
     Dates: start: 2020, end: 2020
  2. PROPOFOL. [Suspect]
     Active Substance: PROPOFOL
     Indication: AGITATION
  3. HYDROMORPHONE [Suspect]
     Active Substance: HYDROMORPHONE
     Indication: MECHANICAL VENTILATION
     Route: 041
     Dates: start: 2020, end: 2020
  4. PROPOFOL. [Suspect]
     Active Substance: PROPOFOL
     Indication: MECHANICAL VENTILATION
     Route: 041
     Dates: start: 2020, end: 2020
  5. OXYCODONE HCL CAPSULES [Suspect]
     Active Substance: OXYCODONE HYDROCHLORIDE
     Indication: AGITATION
  6. HYDROMORPHONE [Suspect]
     Active Substance: HYDROMORPHONE
     Indication: AGITATION
  7. CHLORDIAZEPOXIDE. [Suspect]
     Active Substance: CHLORDIAZEPOXIDE
     Indication: MECHANICAL VENTILATION
     Dosage: UP TO 30 MG DAILY
     Route: 041
     Dates: start: 2020, end: 2020
  8. CHLORDIAZEPOXIDE. [Suspect]
     Active Substance: CHLORDIAZEPOXIDE
     Indication: AGITATION

REACTIONS (1)
  - Delirium [Recovered/Resolved]

NARRATIVE: CASE EVENT DATE: 2020
